FAERS Safety Report 9230854 (Version 3)
Quarter: 2014Q3

REPORT INFORMATION
  Report Type: Report from Study
  Country: US (occurrence: US)
  Receive Date: 20130415
  Receipt Date: 20140917
  Transmission Date: 20150326
  Serious: Yes (Other)
  Sender: FDA-Public Use
  Company Number: PHHO2013US004891

PATIENT
  Age: 60 Year
  Sex: Female
  Weight: 83.9 kg

DRUGS (9)
  1. VITAMIIN C [Concomitant]
     Active Substance: ASCORBIC ACID
  2. SOM230 [Suspect]
     Active Substance: PASIREOTIDE
     Indication: INTRADUCTAL PROLIFERATIVE BREAST LESION
     Dosage: 600 UG, BID
     Route: 058
     Dates: start: 20130307
  3. E VITAMIN E [Concomitant]
     Dosage: UNK
  4. WELLBUTRIN [Concomitant]
     Active Substance: BUPROPION HYDROCHLORIDE
     Dosage: UNK
     Dates: end: 20130314
  5. BENADRYL [Concomitant]
     Active Substance: DIPHENHYDRAMINE HYDROCHLORIDE
     Dosage: UNK
     Dates: end: 20130307
  6. SOM230 [Suspect]
     Active Substance: PASIREOTIDE
     Dosage: 600 UG, (AM DOSE)
     Route: 058
     Dates: start: 20130313, end: 20130313
  7. MAGNESIUM [Concomitant]
     Active Substance: MAGNESIUM
  8. SOM230 [Suspect]
     Active Substance: PASIREOTIDE
     Dosage: 300 UG, BID (11 MAR 2013 PM DOSE AND 12 MAR 2013 BOTH PM AND AM DOSE REDUCED)
     Route: 058
     Dates: start: 20130311, end: 20130312
  9. OSTELIN VITAMIN D [Concomitant]

REACTIONS (1)
  - Gingival pain [Recovering/Resolving]

NARRATIVE: CASE EVENT DATE: 20130311
